FAERS Safety Report 9897728 (Version 2)
Quarter: 2014Q3

REPORT INFORMATION
  Report Type: Spontaneous
  Country: ES (occurrence: ES)
  Receive Date: 20140214
  Receipt Date: 20140701
  Transmission Date: 20150326
  Serious: Yes (Other)
  Sender: FDA-Public Use
  Company Number: ES-VERTEX PHARMACEUTICALS INC-2014-000778

PATIENT
  Age: 75 Year
  Sex: Female

DRUGS (5)
  1. COPEGUS [Concomitant]
     Active Substance: RIBAVIRIN
     Indication: CHRONIC HEPATITIS C
     Dosage: 800 MG, QD
     Route: 065
     Dates: start: 20131018, end: 20131118
  2. INCIVO [Suspect]
     Active Substance: TELAPREVIR
     Indication: CHRONIC HEPATITIS C
     Dosage: 2250 MG, QD
     Route: 048
     Dates: start: 20131018
  3. COPEGUS [Concomitant]
     Active Substance: RIBAVIRIN
     Dosage: 600 MG, QD
     Route: 065
     Dates: start: 20131118
  4. DARBEPOETIN ALFA [Concomitant]
     Active Substance: DARBEPOETIN ALFA
     Indication: ANAEMIA
     Dosage: 100 ?G, QW
     Route: 065
     Dates: start: 20131129, end: 20131216
  5. PEGASYS [Concomitant]
     Active Substance: PEGINTERFERON ALFA-2A
     Indication: HEPATITIS C
     Dosage: 180 ?G, QW
     Route: 065
     Dates: start: 20131018

REACTIONS (2)
  - Rash [Recovered/Resolved]
  - Anaemia [Recovered/Resolved]

NARRATIVE: CASE EVENT DATE: 20131126
